FAERS Safety Report 11455693 (Version 1)
Quarter: 2015Q3

REPORT INFORMATION
  Report Type: Spontaneous
  Country: US (occurrence: US)
  Receive Date: 20150903
  Receipt Date: 20150903
  Transmission Date: 20151125
  Serious: No
  Sender: FDA-Public Use
  Company Number: US-BEH-2015049725

PATIENT
  Sex: Male
  Weight: 98.9 kg

DRUGS (11)
  1. SINGULAIR [Concomitant]
     Active Substance: MONTELUKAST SODIUM
  2. SPIRIVA [Concomitant]
     Active Substance: TIOTROPIUM BROMIDE MONOHYDRATE
  3. ZEMAIRA [Suspect]
     Active Substance: .ALPHA.1-PROTEINASE INHIBITOR HUMAN
     Indication: ALPHA-1 ANTI-TRYPSIN DEFICIENCY
     Route: 042
  4. PULMICORT TURBUHALER [Concomitant]
     Active Substance: BUDESONIDE
  5. IBUPROFEN. [Concomitant]
     Active Substance: IBUPROFEN
  6. VENTOLIN [Concomitant]
     Active Substance: ALBUTEROL SULFATE
  7. ALBUTEROL. [Concomitant]
     Active Substance: ALBUTEROL
  8. PROTONIX [Concomitant]
     Active Substance: PANTOPRAZOLE SODIUM
  9. LISINOPRIL. [Concomitant]
     Active Substance: LISINOPRIL
  10. LORATADINE. [Concomitant]
     Active Substance: LORATADINE
  11. NASACORT [Concomitant]
     Active Substance: TRIAMCINOLONE ACETONIDE

REACTIONS (3)
  - Viral infection [Unknown]
  - Fatigue [Unknown]
  - Cough [Unknown]
